FAERS Safety Report 24281870 (Version 1)
Quarter: 2024Q3

REPORT INFORMATION
  Report Type: Spontaneous
  Country: GB (occurrence: GB)
  Receive Date: 20240904
  Receipt Date: 20240904
  Transmission Date: 20241016
  Serious: Yes (Other)
  Sender: PFIZER
  Company Number: None

PATIENT
  Age: 66 Year
  Sex: Female
  Weight: 85 kg

DRUGS (2)
  1. PACLITAXEL [Suspect]
     Active Substance: PACLITAXEL
     Indication: Lung neoplasm malignant
     Dosage: 90 MG
     Dates: start: 20240829, end: 20240829
  2. LEVOTHYROXINE [Concomitant]
     Active Substance: LEVOTHYROXINE\LEVOTHYROXINE SODIUM
     Indication: Decreased activity
     Dates: start: 20031214

REACTIONS (6)
  - Flushing [Recovered/Resolved]
  - Unresponsive to stimuli [Recovered/Resolved]
  - Atrial fibrillation [Unknown]
  - Dysarthria [Recovered/Resolved]
  - Muscle rigidity [Recovered/Resolved]
  - Memory impairment [Unknown]

NARRATIVE: CASE EVENT DATE: 20240829
